FAERS Safety Report 4345451-9 (Version None)
Quarter: 2004Q2

REPORT INFORMATION
  Report Type: 
  Country: None (occurrence: None)
  Receive Date: 20040421
  Receipt Date: 20040325
  Transmission Date: 20050107
  Serious: Yes (Other)
  Sender: FDA-Public Use
  Company Number: 2004-UK-00301UK

PATIENT
  Age: 75 Year
  Sex: Female

DRUGS (6)
  1. MICARDIS [Suspect]
     Indication: HYPERTENSION
     Dosage: 80 MG   ALMOST 2 YEARS
     Dates: start: 20020405, end: 20040301
  2. AMLODIPINE [Concomitant]
  3. SALBUTAMOL (SALBUTAMOL) [Concomitant]
  4. CARBIMAZOLE (CARBIMAZOLE) [Concomitant]
  5. QUININE SULPHATE (QUININE SULFATE) [Concomitant]
  6. WARFARIN SODIUM [Concomitant]

REACTIONS (6)
  - DIZZINESS [None]
  - DYSPNOEA EXACERBATED [None]
  - FATIGUE [None]
  - FEELING ABNORMAL [None]
  - OEDEMA PERIPHERAL [None]
  - RENAL IMPAIRMENT [None]
